FAERS Safety Report 7519259-7 (Version None)
Quarter: 2011Q2

REPORT INFORMATION
  Report Type: 
  Country: None (occurrence: None)
  Receive Date: 20110602
  Receipt Date: 20110524
  Transmission Date: 20111010
  Serious: Yes (Hospitalization, Other)
  Sender: FDA-Public Use
  Company Number: US-AMGEN-USACT2010009920

PATIENT
  Age: 77 Year
  Sex: Male

DRUGS (14)
  1. COREG [Concomitant]
     Dosage: 6.25 MG, BID
  2. ISOSORBIDE MONONITRATE [Concomitant]
     Dosage: 30 MG, QD
  3. IMODIUM [Concomitant]
     Dosage: UNK UNK, BID
  4. DIGOXIN [Concomitant]
  5. PLACEBO [Suspect]
     Indication: CARDIAC FAILURE
     Route: 058
     Dates: start: 20100426, end: 20101119
  6. FUROSEMIDE [Concomitant]
     Dosage: 40 MG, UNK
  7. LEVOTHYROXINE SODIUM [Concomitant]
     Dosage: UNK UNK, QD
  8. ASACOL [Concomitant]
     Dosage: UNK UNK, QD
  9. BLINDED DARBEPOETIN ALFA [Suspect]
     Indication: CARDIAC FAILURE
     Route: 058
     Dates: start: 20100426, end: 20101119
  10. VITAMINS [Concomitant]
  11. ALLOPURINOL [Concomitant]
     Dosage: 100 MG, QD
  12. PRILOSEC [Concomitant]
     Dosage: 20 MG, QD
  13. AMIODARONE HCL [Concomitant]
     Dosage: 200 MG, QD
  14. FERROUS SULFATE TAB [Concomitant]

REACTIONS (3)
  - HEPATIC LESION [None]
  - STAPHYLOCOCCAL SEPSIS [None]
  - RENAL MASS [None]
